FAERS Safety Report 7623166-9 (Version None)
Quarter: 2011Q3

REPORT INFORMATION
  Report Type: 
  Country: None (occurrence: None)
  Receive Date: 20110720
  Receipt Date: 20110709
  Transmission Date: 20111222
  Serious: Yes (Hospitalization)
  Sender: FDA-Public Use
  Company Number: PHHO2011JP11925

PATIENT
  Sex: Male

DRUGS (13)
  1. DOXAZOSIN MESYLATE [Suspect]
     Indication: HYPERTENSION
     Dosage: 1 MG, UNK
     Route: 048
     Dates: start: 20081212
  2. INDOMETHACIN [Suspect]
     Indication: BACK PAIN
     Dosage: UNK
     Dates: start: 20110530
  3. AMLODIPINE [Suspect]
     Indication: HYPERTENSION
     Dosage: 5 MG, UNK
     Route: 048
     Dates: start: 20100325
  4. DIOVAN [Suspect]
     Indication: HYPERTENSION
     Dosage: 80 MG, UNK
     Route: 048
     Dates: start: 20110425
  5. ROHYPNOL [Suspect]
     Indication: INSOMNIA
     Dosage: UNK
     Route: 048
     Dates: start: 20100715
  6. ALLOPURINOL [Suspect]
     Indication: GOUT
     Dosage: 200 MG, UNK
     Route: 048
     Dates: start: 20100902
  7. TICLOPIDINE HCL [Suspect]
     Indication: THROMBOSIS PROPHYLAXIS
     Dosage: 200 MG, UNK
     Route: 048
     Dates: start: 19960101
  8. LOXONIN [Suspect]
     Indication: GOUT
     Dosage: UNK
     Route: 048
     Dates: start: 20100811
  9. FAMOTIDINE [Suspect]
     Indication: GASTRITIS PROPHYLAXIS
     Dosage: 40 MG, UNK
     Route: 048
     Dates: start: 20100916
  10. AFINITOR [Suspect]
     Indication: METASTATIC GASTRIC CANCER
     Dosage: 10 MG, UNK
     Route: 048
     Dates: start: 20100902, end: 20100917
  11. HACHIAZULE [Suspect]
     Indication: PROPHYLAXIS
     Dosage: UNK
     Dates: start: 20100913
  12. AFINITOR [Suspect]
     Dosage: 10 MG, UNK
     Route: 048
     Dates: start: 20100923, end: 20110708
  13. ZOLPIDEM [Suspect]
     Indication: INSOMNIA
     Dosage: UNK
     Dates: start: 20100521

REACTIONS (1)
  - RETINAL DETACHMENT [None]
